FAERS Safety Report 6385239-0 (Version None)
Quarter: 2009Q4

REPORT INFORMATION
  Report Type: 
  Country: None (occurrence: None)
  Receive Date: 20091002
  Receipt Date: 20090603
  Transmission Date: 20100525
  Serious: No
  Sender: FDA-Public Use
  Company Number: US-ASTRAZENECA-2008UW13867

PATIENT
  Age: 62 Year
  Sex: Female
  Weight: 64.4 kg

DRUGS (7)
  1. ARIMIDEX [Suspect]
     Indication: BREAST CANCER
     Route: 048
     Dates: start: 20080315
  2. LISINOPRIL [Concomitant]
  3. CALCIUM [Concomitant]
  4. VITAMIN B6 [Concomitant]
  5. ASCORBIC ACID [Concomitant]
  6. ATENOLOL [Concomitant]
  7. ACTONEL [Concomitant]

REACTIONS (2)
  - ALOPECIA [None]
  - BURNING SENSATION [None]
